FAERS Safety Report 9154992 (Version 1)
Quarter: 2013Q1

REPORT INFORMATION
  Report Type: Spontaneous
  Country: FR (occurrence: None)
  Receive Date: 20130208
  Receipt Date: 20130208
  Transmission Date: 20140127
  Serious: Yes (Disabling)
  Sender: FDA-Public Use
  Company Number: 2013-0165

PATIENT
  Age: 69 Year
  Sex: Female

DRUGS (4)
  1. CARFILZOMIB [Suspect]
     Indication: PLASMA CELL MYELOMA
     Dosage: (DAYS 1,2, 8, 9, 22, 23, 29 AND 30), INTRAVENOUS
     Route: 042
  2. MELPHALAN (MELPHALAN) (MELPHALAN) [Concomitant]
  3. PREDNISONE (PREDNISONE) (PREDNISONE) [Concomitant]
  4. LEVOTHYROXINE (LEVOTHYROXINE) [Concomitant]

REACTIONS (3)
  - Cerebrovascular accident [None]
  - VIth nerve paralysis [None]
  - Visual impairment [None]
